FAERS Safety Report 21213974 (Version 6)
Quarter: 2023Q1

REPORT INFORMATION
  Report Type: Spontaneous
  Country: FR (occurrence: FR)
  Receive Date: 20220816
  Receipt Date: 20230330
  Transmission Date: 20230418
  Serious: Yes (Death, Life-Threatening, Hospitalization, Other)
  Sender: FDA-Public Use
  Company Number: FR-CELLTRION INC.-2022FR012948

PATIENT

DRUGS (32)
  1. RITUXIMAB [Suspect]
     Active Substance: RITUXIMAB
     Indication: Epstein-Barr virus associated lymphoma
     Dosage: 375 MG/M2 ONE INJECTION PER WEEK FOR 4 WEEKS
     Route: 065
  2. RITUXIMAB [Suspect]
     Active Substance: RITUXIMAB
     Indication: Diffuse large B-cell lymphoma
     Dosage: 375 MG/M2, EVERY 21 DAYS
  3. RITUXIMAB [Suspect]
     Active Substance: RITUXIMAB
     Indication: High-grade B-cell lymphoma
     Dosage: 375 MG/M2
     Route: 042
  4. RITUXIMAB [Suspect]
     Active Substance: RITUXIMAB
     Indication: Primary cardiac lymphoma
     Dosage: 375 MG/M2, QW/ONE INJECTION PER WEEK FOR 4 WEEKS
  5. VINCRISTINE [Suspect]
     Active Substance: VINCRISTINE
     Indication: Diffuse large B-cell lymphoma
     Dosage: 1.4 MG/M2, EVERY 21 DAYS
     Route: 065
  6. VINCRISTINE [Suspect]
     Active Substance: VINCRISTINE
     Indication: Epstein-Barr virus associated lymphoma
  7. VINCRISTINE [Suspect]
     Active Substance: VINCRISTINE
     Indication: High-grade B-cell lymphoma
  8. DOXORUBICIN [Suspect]
     Active Substance: DOXORUBICIN
     Indication: Diffuse large B-cell lymphoma
     Dosage: 50 MG/M2, EVERY 21 DAYS
     Route: 065
  9. DOXORUBICIN [Suspect]
     Active Substance: DOXORUBICIN
     Indication: Epstein-Barr virus associated lymphoma
  10. DOXORUBICIN [Suspect]
     Active Substance: DOXORUBICIN
     Indication: High-grade B-cell lymphoma
  11. PREDNISONE [Suspect]
     Active Substance: PREDNISONE
     Indication: Diffuse large B-cell lymphoma
     Route: 065
  12. CYCLOPHOSPHAMIDE [Suspect]
     Active Substance: CYCLOPHOSPHAMIDE
     Indication: Diffuse large B-cell lymphoma
     Dosage: 750 MG/M2, EVERY 21 DAYS
     Route: 065
  13. CYCLOPHOSPHAMIDE [Suspect]
     Active Substance: CYCLOPHOSPHAMIDE
     Indication: Epstein-Barr virus associated lymphoma
  14. CYCLOPHOSPHAMIDE [Suspect]
     Active Substance: CYCLOPHOSPHAMIDE
     Indication: High-grade B-cell lymphoma
  15. VINCRISTINE SULFATE [Suspect]
     Active Substance: VINCRISTINE SULFATE
     Indication: Epstein-Barr virus associated lymphoma
     Dosage: 1.4 MG/M2  EVERY 3 WEEKS/EVERY 21 DAYS
     Route: 065
  16. DOXORUBICIN HYDROCHLORIDE [Suspect]
     Active Substance: DOXORUBICIN HYDROCHLORIDE
     Indication: Epstein-Barr virus associated lymphoma
     Dosage: 50 MG/M2 EVERY 3 WEEKS/EVERY 21 DAYS
     Route: 065
  17. ESMOLOL [Concomitant]
     Active Substance: ESMOLOL HYDROCHLORIDE
     Indication: Ventricular arrhythmia
     Dosage: UNK
  18. NADOLOL [Concomitant]
     Active Substance: NADOLOL
     Indication: Ventricular arrhythmia
     Dosage: UNK
  19. EVEROLIMUS [Concomitant]
     Active Substance: EVEROLIMUS
     Indication: Renal failure
     Dosage: UNK
     Dates: start: 2018
  20. EVEROLIMUS [Concomitant]
     Active Substance: EVEROLIMUS
     Dosage: 1,5 MG PER DAY WAS ADDED TO USE LOWER CYCLOSPORINE DOSE
  21. PREDNISOLONE [Concomitant]
     Active Substance: PREDNISOLONE
     Dosage: UNK
     Dates: start: 2017, end: 2018
  22. CYCLOSPORINE [Concomitant]
     Active Substance: CYCLOSPORINE
     Indication: Immunosuppressant drug therapy
     Dosage: UNK
     Dates: start: 2017, end: 2018
  23. CYCLOSPORINE [Concomitant]
     Active Substance: CYCLOSPORINE
     Indication: Heart transplant
     Dosage: 250 MG, QD
  24. CYCLOSPORINE [Concomitant]
     Active Substance: CYCLOSPORINE
     Dosage: 175 MG, QD
  25. MYCOPHENOLATE MOFETIL [Concomitant]
     Active Substance: MYCOPHENOLATE MOFETIL
  26. MYCOPHENOLATE MOFETIL [Concomitant]
     Active Substance: MYCOPHENOLATE MOFETIL
     Dosage: 2 G PER DAY
  27. ATENOLOL [Concomitant]
     Active Substance: ATENOLOL
     Indication: Ventricular tachycardia
  28. THYMOGLOBULINE [Concomitant]
     Active Substance: LAPINE T-LYMPHOCYTE IMMUNE GLOBULIN
     Dosage: 1 MG/KG PER DAY DURING 4 DAYS AS INDUCTION THERAPY
  29. CYCLOSPORINE [Concomitant]
     Active Substance: CYCLOSPORINE
     Dosage: 175 MG PER DAY, RESPECTIVELY, FOR A RESIDUAL OF 100 NG/ML
  30. CYCLOSPORINE [Concomitant]
     Active Substance: CYCLOSPORINE
     Dosage: 250 MG PER DAY
  31. CYCLOSPORINE [Concomitant]
     Active Substance: CYCLOSPORINE
     Dosage: 10 MG PER DAY
  32. CYCLOSPORINE [Concomitant]
     Active Substance: CYCLOSPORINE
     Dosage: RESIDUAL OF 100 NG/ML

REACTIONS (9)
  - Sudden death [Fatal]
  - Drug ineffective [Fatal]
  - Arrhythmic storm [Recovered/Resolved]
  - Bone pain [Unknown]
  - Tachyphylaxis [Unknown]
  - Disease progression [Unknown]
  - Thrombocytopenia [Unknown]
  - Treatment failure [Unknown]
  - Off label use [Unknown]
